FAERS Safety Report 5074505-7 (Version None)
Quarter: 2006Q3

REPORT INFORMATION
  Report Type: 
  Country: None (occurrence: None)
  Receive Date: 20060803
  Receipt Date: 20060711
  Transmission Date: 20061208
  Serious: Yes (Life-Threatening, Other)
  Sender: FDA-Public Use
  Company Number: 225546

PATIENT
  Age: 61 Year
  Sex: Male
  Weight: 103.4 kg

DRUGS (1)
  1. RAPTIVA [Suspect]
     Indication: PSORIASIS
     Dosage: 125 MG, 1/WEEK, SUBCUTANEOUS
     Route: 058

REACTIONS (2)
  - DECREASED ACTIVITY [None]
  - PULMONARY FIBROSIS [None]
